FAERS Safety Report 11548052 (Version 1)
Quarter: 2015Q3

REPORT INFORMATION
  Report Type: Spontaneous
  Country: US (occurrence: US)
  Receive Date: 20150924
  Receipt Date: 20150924
  Transmission Date: 20151125
  Serious: No
  Sender: FDA-Public Use
  Company Number: US-INCYTE CORPORATION-2015IN000725

PATIENT
  Age: 83 Year
  Sex: Male
  Weight: 62.59 kg

DRUGS (16)
  1. BABY ASPIRIN [Concomitant]
     Active Substance: ASPIRIN
     Dosage: 81 MG
  2. VITAMIN D                          /00107901/ [Concomitant]
     Active Substance: ERGOCALCIFEROL
     Dosage: 120 MG-1000 UNIT-10 MG TAB
  3. JAKAFI [Suspect]
     Active Substance: RUXOLITINIB
     Indication: POLYCYTHAEMIA VERA
     Dosage: 5 MG, BID
     Route: 048
     Dates: start: 20150128
  4. METOPROLOL SUCCINATE. [Concomitant]
     Active Substance: METOPROLOL SUCCINATE
     Dosage: 25 MG TABLET, EXTENDED RELEASE 24 HR
  5. HYDREA [Concomitant]
     Active Substance: HYDROXYUREA
  6. MINERALS NOS [Concomitant]
     Active Substance: MINERALS
  7. PROBIOTIC                          /06395501/ [Concomitant]
     Active Substance: BIFIDOBACTERIUM ANIMALIS SUBSP. LACTIS
     Dosage: 10 BILLION CELL CAPSULE
  8. MAGNESIUM [Concomitant]
     Active Substance: MAGNESIUM
  9. CARNITINE [Concomitant]
     Active Substance: CARNITINE
  10. VITAMIN C [Concomitant]
     Active Substance: ASCORBIC ACID
     Dosage: 1000 MG
  11. PREDNISONE. [Concomitant]
     Active Substance: PREDNISONE
  12. LASIX [Concomitant]
     Active Substance: FUROSEMIDE
     Dosage: 20 MG, 40 MG
  13. IRON [Concomitant]
     Active Substance: IRON
     Dosage: 325 MG
  14. VITAMIN B COMPLEX                  /00056201/ [Concomitant]
     Route: 049
  15. PROTONIX [Concomitant]
     Active Substance: PANTOPRAZOLE SODIUM
     Dosage: 40 MG
  16. CO Q 10                            /00517201/ [Concomitant]
     Dosage: 200 MG

REACTIONS (14)
  - Dementia [Unknown]
  - Muscular weakness [Unknown]
  - Arthralgia [Unknown]
  - Back pain [Unknown]
  - Dyspnoea [Unknown]
  - Fatigue [Unknown]
  - Leukocytosis [Recovering/Resolving]
  - Contusion [Unknown]
  - Haematocrit increased [Unknown]
  - Dizziness [Unknown]
  - Platelet count increased [Recovering/Resolving]
  - Erythema [Unknown]
  - Abdominal distension [Unknown]
  - Oedema peripheral [Unknown]

NARRATIVE: CASE EVENT DATE: 20150214
